FAERS Safety Report 6643289-0 (Version None)
Quarter: 2010Q1

REPORT INFORMATION
  Report Type: 
  Country: None (occurrence: None)
  Receive Date: 20100319
  Receipt Date: 20100310
  Transmission Date: 20100710
  Serious: Yes (Hospitalization)
  Sender: FDA-Public Use
  Company Number: GXKR2010FR03079

PATIENT
  Sex: Male

DRUGS (2)
  1. PARACETAMOL (NGX) [Suspect]
     Dosage: UNK
     Route: 048
     Dates: start: 20090420, end: 20090421
  2. JOSAMYCIN [Suspect]
     Dosage: UNK
     Route: 048
     Dates: start: 20090420, end: 20090421

REACTIONS (1)
  - ACUTE GENERALISED EXANTHEMATOUS PUSTULOSIS [None]
